APPROVED DRUG PRODUCT: ESOMEPRAZOLE MAGNESIUM
Active Ingredient: ESOMEPRAZOLE MAGNESIUM
Strength: EQ 40MG BASE
Dosage Form/Route: CAPSULE, DELAYED REL PELLETS;ORAL
Application: A203636 | Product #002
Applicant: TORRENT PHARMACEUTICALS LTD
Approved: Oct 19, 2015 | RLD: No | RS: No | Type: DISCN